FAERS Safety Report 8322400-X (Version None)
Quarter: 2012Q1

REPORT INFORMATION
  Report Type: 
  Country: None (occurrence: None)
  Receive Date: 20120315
  Receipt Date: 20110311
  Transmission Date: 20120608
  Serious: No
  Sender: FDA-Public Use
  Company Number: PHHY2011US14464

PATIENT
  Age: 39 Year
  Sex: Female
  Weight: 62.6 kg

DRUGS (3)
  1. GABAPENTIN [Concomitant]
  2. ORTHO NOVUM 0.5/50 21 TAB [Concomitant]
  3. GILENYA [Suspect]
     Indication: MULTIPLE SCLEROSIS
     Dosage: 0.5 MG, DAILY, ORAL
     Route: 048
     Dates: start: 20110128

REACTIONS (5)
  - URTICARIA [None]
  - ERYTHEMA [None]
  - BLISTER [None]
  - PRURITUS [None]
  - RASH MACULO-PAPULAR [None]
